FAERS Safety Report 9708811 (Version 1)
Quarter: 2013Q4

REPORT INFORMATION
  Report Type: Spontaneous
  Country: US (occurrence: US)
  Receive Date: 20131125
  Receipt Date: 20131125
  Transmission Date: 20140711
  Serious: Yes (Disabling)
  Sender: FDA-Public Use
  Company Number: CHPA2013US017445

PATIENT
  Age: 81 Year
  Sex: Female

DRUGS (2)
  1. VOLTAREN GEL [Suspect]
     Indication: ARTHRITIS
     Dosage: 2 G, TID
     Route: 061
     Dates: start: 20131118, end: 20131119
  2. ANTICOAGULANTS [Concomitant]

REACTIONS (4)
  - Gait disturbance [Unknown]
  - Muscle spasms [Unknown]
  - Contusion [Unknown]
  - Underdose [Unknown]
